FAERS Safety Report 6946047-2 (Version None)
Quarter: 2010Q3

REPORT INFORMATION
  Report Type: 
  Country: None (occurrence: None)
  Receive Date: 20100827
  Receipt Date: 20100414
  Transmission Date: 20110219
  Serious: No
  Sender: FDA-Public Use
  Company Number: A0855000A

PATIENT
  Age: 39 Year
  Sex: Female

DRUGS (3)
  1. ZOVIRAX [Suspect]
     Indication: GENITAL HERPES
     Dosage: 400MG TWICE PER DAY
     Route: 048
     Dates: start: 20090101
  2. LYRICA [Concomitant]
  3. KAPIDEX [Concomitant]

REACTIONS (1)
  - CONDITION AGGRAVATED [None]
